FAERS Safety Report 6088951-6 (Version None)
Quarter: 2009Q1

REPORT INFORMATION
  Report Type: 
  Country: None (occurrence: None)
  Receive Date: 20090219
  Receipt Date: 20090219
  Transmission Date: 20090719
  Serious: Yes (Hospitalization)
  Sender: FDA-Public Use
  Company Number: None

PATIENT
  Age: 77 Year
  Sex: Female
  Weight: 58.9676 kg

DRUGS (2)
  1. RECLAST [Suspect]
     Indication: FRACTURE
     Dosage: 5 MG YEARLY IV
     Route: 042
     Dates: start: 20081013
  2. RECLAST [Suspect]
     Indication: PROPHYLAXIS
     Dosage: 5 MG YEARLY IV
     Route: 042
     Dates: start: 20081013

REACTIONS (1)
  - ATRIAL FIBRILLATION [None]
